FAERS Safety Report 15440242 (Version 1)
Quarter: 2018Q3

REPORT INFORMATION
  Report Type: Spontaneous
  Country: US (occurrence: US)
  Receive Date: 20180925
  Receipt Date: 20180925
  Transmission Date: 20181010
  Serious: Yes (Other)
  Sender: FDA-Public Use
  Company Number: None

PATIENT
  Age: 62 Year
  Sex: Female
  Weight: 81.9 kg

DRUGS (6)
  1. REPATHA [Suspect]
     Active Substance: EVOLOCUMAB
     Indication: TYPE IIA HYPERLIPIDAEMIA
     Route: 058
     Dates: start: 20161201, end: 20180816
  2. ROUSVASTATIN [Concomitant]
  3. IRBESARTAN. [Concomitant]
     Active Substance: IRBESARTAN
  4. INSULIN LISPRO [Concomitant]
     Active Substance: INSULIN LISPRO
  5. GLIPIZIDE. [Concomitant]
     Active Substance: GLIPIZIDE
  6. INSULIN DEGLUDEC [Concomitant]
     Active Substance: INSULIN DEGLUDEC

REACTIONS (3)
  - Diabetes mellitus inadequate control [None]
  - Glycosylated haemoglobin increased [None]
  - Weight increased [None]

NARRATIVE: CASE EVENT DATE: 20180925
